FAERS Safety Report 14430443 (Version 1)
Quarter: 2018Q1

REPORT INFORMATION
  Report Type: Spontaneous
  Country: IT (occurrence: IT)
  Receive Date: 20180124
  Receipt Date: 20180124
  Transmission Date: 20180509
  Serious: Yes (Other)
  Sender: FDA-Public Use
  Company Number: IT-IPSEN BIOPHARMACEUTICALS, INC.-2018-01050

PATIENT
  Age: 70 Year
  Sex: Male

DRUGS (7)
  1. 5-FU [Suspect]
     Active Substance: FLUOROURACIL
     Indication: ADENOCARCINOMA OF COLON
     Route: 040
     Dates: start: 201410, end: 2015
  2. LEUCOVORIN. [Suspect]
     Active Substance: LEUCOVORIN
     Indication: ADENOCARCINOMA OF COLON
     Dates: start: 201410, end: 2015
  3. PANITUMUMAB [Suspect]
     Active Substance: PANITUMUMAB
     Indication: ADENOCARCINOMA OF COLON
     Dates: start: 201410, end: 2015
  4. LIPOSOMAL IRINOTECAN [Suspect]
     Active Substance: IRINOTECAN HYDROCHLORIDE
     Indication: ADENOCARCINOMA OF COLON
     Dosage: 180 MG/M2
     Route: 065
     Dates: start: 201410, end: 2015
  5. LIPOSOMAL IRINOTECAN [Suspect]
     Active Substance: IRINOTECAN HYDROCHLORIDE
     Indication: OFF LABEL USE
  6. 5-FU [Suspect]
     Active Substance: FLUOROURACIL
     Route: 041
     Dates: start: 201410, end: 2015
  7. PANITUMUMAB [Suspect]
     Active Substance: PANITUMUMAB
     Route: 042
     Dates: start: 201506

REACTIONS (6)
  - Skin toxicity [Unknown]
  - Asthenia [Unknown]
  - Neutropenia [Unknown]
  - Diarrhoea [Unknown]
  - Off label use [Unknown]
  - Drug effective for unapproved indication [Unknown]

NARRATIVE: CASE EVENT DATE: 2015
